FAERS Safety Report 9842876 (Version 2)
Quarter: 2014Q1

REPORT INFORMATION
  Report Type: Spontaneous
  Country: US (occurrence: US)
  Receive Date: 20140124
  Receipt Date: 20140306
  Transmission Date: 20141002
  Serious: No
  Sender: FDA-Public Use
  Company Number: US-PFIZER INC-2014021389

PATIENT
  Age: 46 Year
  Sex: Female
  Weight: 87.1 kg

DRUGS (5)
  1. LYRICA [Suspect]
     Indication: FIBROMYALGIA
     Dosage: 75 MG, 2X/DAY
  2. PHENELZINE [Concomitant]
     Indication: DEPRESSION
     Dosage: 15 MG, 3X/DAY
  3. ABILIFY [Concomitant]
     Indication: DEPRESSION
     Dosage: 60 MG, DAILY
  4. SIMVASTATIN [Concomitant]
     Indication: BLOOD CHOLESTEROL INCREASED
     Dosage: 20 MG, DAILY
  5. DEPLIN [Concomitant]
     Indication: DEPRESSION
     Dosage: 50 MG, DAILY

REACTIONS (2)
  - Nasopharyngitis [Not Recovered/Not Resolved]
  - Nasal congestion [Not Recovered/Not Resolved]
